FAERS Safety Report 16164514 (Version 3)
Quarter: 2019Q3

REPORT INFORMATION
  Report Type: Spontaneous
  Country: US (occurrence: US)
  Receive Date: 20190405
  Receipt Date: 20190726
  Transmission Date: 20191004
  Serious: Yes (Other)
  Sender: FDA-Public Use
  Company Number: US-PFIZER INC-2019125754

PATIENT
  Age: 48 Year
  Sex: Male

DRUGS (2)
  1. VIAGRA [Suspect]
     Active Substance: SILDENAFIL CITRATE
     Indication: ERECTILE DYSFUNCTION
     Dosage: 0.5 DF, AS NEEDED
     Route: 048
     Dates: start: 20190315
  2. VIAGRA [Suspect]
     Active Substance: SILDENAFIL CITRATE
     Dosage: AS NEEDED
     Dates: start: 2012

REACTIONS (1)
  - Respiratory tract infection [Unknown]
